FAERS Safety Report 15893703 (Version 1)
Quarter: 2019Q1

REPORT INFORMATION
  Report Type: Spontaneous
  Country: FR (occurrence: FR)
  Receive Date: 20190131
  Receipt Date: 20190131
  Transmission Date: 20190417
  Serious: Yes (Hospitalization)
  Sender: FDA-Public Use
  Company Number: FR-TEVA-2019-FR-1003854

PATIENT
  Age: 82 Year
  Sex: Female
  Weight: 78 kg

DRUGS (11)
  1. CYMBALTA [Suspect]
     Active Substance: DULOXETINE HYDROCHLORIDE
     Indication: DEPRESSION
     Dosage: 30 MILLIGRAM DAILY; 0-0-1
     Route: 048
     Dates: start: 20180906
  2. FUROSEMIDE. [Suspect]
     Active Substance: FUROSEMIDE
     Indication: HYPERTENSION
     Dosage: 20 MILLIGRAM DAILY;
     Route: 048
     Dates: start: 20180906
  3. SPECIAFOLDINE [Suspect]
     Active Substance: FOLIC ACID
     Indication: HYPOVITAMINOSIS
     Dosage: 5 MILLIGRAM DAILY;
     Route: 048
     Dates: start: 20180906, end: 20181118
  4. DOLIPRANE [Suspect]
     Active Substance: ACETAMINOPHEN
     Indication: PAIN
     Dosage: 3 GRAM DAILY; 1-1-1
     Route: 048
     Dates: start: 20180906
  5. ZYMAD 80 000 UI, SOLUTION BUVABLE EN AMPOULE [Suspect]
     Active Substance: CHOLECALCIFEROL
     Indication: HYPOVITAMINOSIS
     Dosage: 80000 IU
     Route: 048
     Dates: start: 20180906, end: 20181121
  6. ATORVASTATINE [Suspect]
     Active Substance: ATORVASTATIN
     Indication: CARDIOVASCULAR EVENT PROPHYLAXIS
     Dosage: 10 MILLIGRAM DAILY;
     Route: 048
     Dates: start: 20180906, end: 20181119
  7. LERCAN 20 MG, COMPRIM? PELLICUL? [Suspect]
     Active Substance: LERCANIDIPINE HYDROCHLORIDE
     Indication: HYPERTENSION
     Dosage: 20 MILLIGRAM DAILY; 0-0-1
     Route: 048
     Dates: start: 20180906
  8. DUOPLAVIN 75 MG/75 MG, COMPRIM? PELLICUL? [Suspect]
     Active Substance: ASPIRIN\CLOPIDOGREL
     Indication: THROMBOSIS PROPHYLAXIS
     Dosage: 1 DOSAGE FORMS DAILY; 1-0-0
     Route: 048
     Dates: start: 20180906, end: 20181118
  9. LANTUS [Suspect]
     Active Substance: INSULIN GLARGINE
     Indication: KETOSIS-PRONE DIABETES MELLITUS
     Dosage: 22 IU (INTERNATIONAL UNIT) DAILY; 0-0-22 UNITS
     Route: 058
     Dates: start: 20180906
  10. VICTOZA [Suspect]
     Active Substance: LIRAGLUTIDE
     Indication: KETOSIS-PRONE DIABETES MELLITUS
     Dosage: 1.2 MILLIGRAM DAILY; 0-0-1
     Route: 048
     Dates: start: 20180906
  11. RAMIPRIL. [Suspect]
     Active Substance: RAMIPRIL
     Indication: HYPERTENSION
     Dosage: 10 MILLIGRAM DAILY;
     Route: 048
     Dates: start: 20180906

REACTIONS (3)
  - Rhabdomyolysis [Not Recovered/Not Resolved]
  - Fall [Not Recovered/Not Resolved]
  - Asthenia [Not Recovered/Not Resolved]

NARRATIVE: CASE EVENT DATE: 20181103
